FAERS Safety Report 21423013 (Version 1)
Quarter: 2022Q4

REPORT INFORMATION
  Report Type: Spontaneous
  Country: US (occurrence: US)
  Receive Date: 20221007
  Receipt Date: 20221007
  Transmission Date: 20230112
  Serious: No
  Sender: FDA-Public Use
  Company Number: US-BRISTOL-MYERS SQUIBB COMPANY-2022-117023

PATIENT
  Age: 71 Year
  Sex: Female

DRUGS (1)
  1. REVLIMID [Suspect]
     Active Substance: LENALIDOMIDE
     Indication: Plasma cell myeloma
     Dosage: TAKE ONE CAPSULE BY MOUTH DAILY ON DAYS 1-14, THEN 1 WEEK OFF
     Route: 048
     Dates: start: 20220913

REACTIONS (7)
  - Dizziness [Unknown]
  - Tremor [Unknown]
  - Disorientation [Unknown]
  - Lethargy [Unknown]
  - Asthenia [Unknown]
  - Dysstasia [Unknown]
  - Off label use [Unknown]
